FAERS Safety Report 12661913 (Version 1)
Quarter: 2016Q3

REPORT INFORMATION
  Report Type: Spontaneous
  Country: IT (occurrence: IT)
  Receive Date: 20160817
  Receipt Date: 20160817
  Transmission Date: 20161109
  Serious: Yes (Hospitalization)
  Sender: FDA-Public Use
  Company Number: PHHY2016IT111999

PATIENT
  Age: 85 Year
  Sex: Female

DRUGS (2)
  1. ACETYLSALICYLIC ACID [Suspect]
     Active Substance: ASPIRIN
     Indication: THROMBOSIS PROPHYLAXIS
     Dosage: 100 MG, Q12H
     Route: 048
     Dates: start: 20160101, end: 20160719
  2. COUMADIN [Suspect]
     Active Substance: WARFARIN SODIUM
     Indication: ATRIAL FIBRILLATION
     Dosage: 1 DF, PRN
     Route: 048
     Dates: start: 20160101, end: 20160719

REACTIONS (3)
  - Anaemia [Unknown]
  - Presyncope [Unknown]
  - Melaena [Unknown]

NARRATIVE: CASE EVENT DATE: 20160719
